FAERS Safety Report 6465327-0 (Version None)
Quarter: 2009Q4

REPORT INFORMATION
  Report Type: 
  Country: None (occurrence: None)
  Receive Date: 20091201
  Receipt Date: 20090706
  Transmission Date: 20100525
  Serious: No
  Sender: FDA-Public Use
  Company Number: US-AMGEN-KDL275704

PATIENT
  Sex: Male

DRUGS (3)
  1. ENBREL [Suspect]
     Indication: PSORIATIC ARTHROPATHY
     Route: 058
     Dates: start: 20080101, end: 20080501
  2. ENBREL [Suspect]
     Indication: PSORIASIS
  3. VICOPROFEN (KNOLL LABS) [Concomitant]

REACTIONS (4)
  - BURNS SECOND DEGREE [None]
  - PHOTOSENSITIVITY REACTION [None]
  - SUNBURN [None]
  - WOUND SECRETION [None]
